FAERS Safety Report 6998781-6 (Version None)
Quarter: 2010Q3

REPORT INFORMATION
  Report Type: 
  Country: None (occurrence: None)
  Receive Date: 20100920
  Receipt Date: 20100514
  Transmission Date: 20110219
  Serious: No
  Sender: FDA-Public Use
  Company Number: US-ASTRAZENECA-2010SE22330

PATIENT
  Sex: Female
  Weight: 59.9 kg

DRUGS (1)
  1. SEROQUEL XR [Suspect]
     Indication: BIPOLAR I DISORDER
     Route: 048
     Dates: start: 20070101

REACTIONS (4)
  - HYPERTENSION [None]
  - RENAL FAILURE [None]
  - SCHIZOPHRENIA [None]
  - TARDIVE DYSKINESIA [None]
